FAERS Safety Report 11231250 (Version 3)
Quarter: 2015Q3

REPORT INFORMATION
  Report Type: Spontaneous
  Country: GB (occurrence: GB)
  Receive Date: 20150701
  Receipt Date: 20150812
  Transmission Date: 20151125
  Serious: Yes (Other)
  Sender: FDA-Public Use
  Company Number: GB-TEVA-573699ACC

PATIENT
  Age: 71 Year
  Sex: Female
  Weight: 71.66 kg

DRUGS (9)
  1. RANITIDINE [Suspect]
     Active Substance: RANITIDINE\RANITIDINE HYDROCHLORIDE
     Indication: GASTROOESOPHAGEAL REFLUX DISEASE
     Route: 048
     Dates: start: 20150507, end: 20150508
  2. OMEPRAZOLE. [Suspect]
     Active Substance: OMEPRAZOLE
     Dosage: 30 MILLIGRAM DAILY;
     Route: 048
     Dates: start: 2013
  3. OMEPRAZOLE. [Suspect]
     Active Substance: OMEPRAZOLE
     Dosage: 10 TO 20 MG PER 24 HOURS.
     Route: 048
     Dates: end: 20150515
  4. ADCAL-D3 [Concomitant]
     Active Substance: CALCIUM CARBONATE\CHOLECALCIFEROL
     Dates: start: 1986
  5. ANADIN [Concomitant]
     Active Substance: IBUPROFEN
     Dosage: AT THE MOST 2 TABLETS IN 6 MONTHS
  6. GAVISCON [Concomitant]
     Active Substance: ALUMINUM HYDROXIDE\MAGNESIUM CARBONATE
  7. RENNIE [Concomitant]
     Active Substance: MAGNESIUM CARBONATE
  8. ALENDRONIC ACID [Concomitant]
     Active Substance: ALENDRONIC ACID
     Dates: start: 2014
  9. OMEPRAZOLE. [Suspect]
     Active Substance: OMEPRAZOLE
     Indication: GASTROOESOPHAGEAL REFLUX DISEASE
     Route: 048
     Dates: start: 20111221, end: 2013

REACTIONS (2)
  - Heart rate irregular [Recovering/Resolving]
  - Chest pain [Unknown]
